FAERS Safety Report 5475010-6 (Version None)
Quarter: 2007Q4

REPORT INFORMATION
  Report Type: 
  Country: None (occurrence: None)
  Receive Date: 20071002
  Receipt Date: 20070927
  Transmission Date: 20080405
  Serious: Yes (Other)
  Sender: FDA-Public Use
  Company Number: US-ASTRAZENECA-2007UW22622

PATIENT
  Age: 40 Year
  Sex: Female
  Weight: 109.8 kg

DRUGS (2)
  1. CRESTOR [Suspect]
     Indication: HIGH DENSITY LIPOPROTEIN DECREASED
     Route: 048
     Dates: start: 20070601, end: 20070912
  2. ALLEGRA [Concomitant]

REACTIONS (2)
  - ABASIA [None]
  - PAIN IN EXTREMITY [None]
